FAERS Safety Report 10977523 (Version 4)
Quarter: 2017Q4

REPORT INFORMATION
  Report Type: Report from Study
  Country: JP (occurrence: JP)
  Receive Date: 20150402
  Receipt Date: 20171120
  Transmission Date: 20180320
  Serious: Yes (Disabling, Other)
  Sender: FDA-Public Use
  Company Number: JP-ALEXION PHARMACEUTICALS INC-A201501100

PATIENT
  Age: 70 Year
  Sex: Male
  Weight: 71 kg

DRUGS (18)
  1. SOLIRIS [Suspect]
     Active Substance: ECULIZUMAB
     Dosage: 600 MG, Q2W
     Route: 042
     Dates: start: 20150406, end: 20150420
  2. SOLIRIS [Suspect]
     Active Substance: ECULIZUMAB
     Dosage: 600 MG, Q2W
     Route: 042
     Dates: start: 20150507, end: 20150522
  3. SOLIRIS [Suspect]
     Active Substance: ECULIZUMAB
     Dosage: 600 MG, Q2W
     Route: 042
     Dates: start: 20150827, end: 20150911
  4. SOLIRIS [Suspect]
     Active Substance: ECULIZUMAB
     Dosage: 900 MG, Q3W
     Dates: start: 20151030, end: 20151120
  5. SOLIRIS [Suspect]
     Active Substance: ECULIZUMAB
     Dosage: 600 MG, Q2W
     Route: 042
     Dates: start: 20151207
  6. SOLIRIS [Suspect]
     Active Substance: ECULIZUMAB
     Dosage: 600 MG, Q2W
     Route: 042
     Dates: start: 20150108
  7. SOLIRIS [Suspect]
     Active Substance: ECULIZUMAB
     Dosage: 600 MG, Q2W
     Route: 042
     Dates: start: 20150928, end: 20151014
  8. CICLOSPORIN [Concomitant]
     Active Substance: CYCLOSPORINE
     Indication: PAROXYSMAL NOCTURNAL HAEMOGLOBINURIA
     Dosage: 100 MG, DAILY
     Route: 065
  9. CICLOSPORIN [Concomitant]
     Active Substance: CYCLOSPORINE
     Dosage: UNK
  10. SOLIRIS [Suspect]
     Active Substance: ECULIZUMAB
     Dosage: 600 MG, Q2W
     Route: 042
     Dates: start: 20141006, end: 20141204
  11. SOLIRIS [Suspect]
     Active Substance: ECULIZUMAB
     Dosage: 600 MG, ONCE EVERY 17 DAYS
     Route: 042
     Dates: start: 20141222, end: 20150108
  12. SOLIRIS [Suspect]
     Active Substance: ECULIZUMAB
     Dosage: 600 MG, ONCE EVERY 17 DAYS
     Route: 042
     Dates: start: 20150522, end: 20150608
  13. SOLIRIS [Suspect]
     Active Substance: ECULIZUMAB
     Dosage: 600 MG, ONCE EVERY 17 DAYS
     Route: 042
     Dates: start: 20150724, end: 20150827
  14. SOLIRIS [Suspect]
     Active Substance: ECULIZUMAB
     Dosage: 600 MG, ONCE EVERY 17 DAYS
     Route: 042
     Dates: start: 20150420, end: 20150507
  15. SOLIRIS [Suspect]
     Active Substance: ECULIZUMAB
     Indication: PAROXYSMAL NOCTURNAL HAEMOGLOBINURIA
     Dosage: 600 MG, QW
     Route: 042
     Dates: start: 20140902, end: 20140925
  16. SOLIRIS [Suspect]
     Active Substance: ECULIZUMAB
     Dosage: 600 MG, ONCE EVERY 17 DAYS
     Route: 042
     Dates: start: 20150911, end: 20150928
  17. SOLIRIS [Suspect]
     Active Substance: ECULIZUMAB
     Dosage: 600 MG, ONCE EVERY 18 DAYS
     Route: 042
     Dates: start: 20141204, end: 20141222
  18. SOLIRIS [Suspect]
     Active Substance: ECULIZUMAB
     Dosage: 600 MG, Q2W
     Route: 042
     Dates: start: 20150608, end: 20150724

REACTIONS (3)
  - Sudden hearing loss [Recovered/Resolved]
  - Incorrect dose administered [Not Recovered/Not Resolved]
  - Inappropriate schedule of drug administration [Unknown]

NARRATIVE: CASE EVENT DATE: 20150316
